FAERS Safety Report 5928931-1 (Version None)
Quarter: 2008Q4

REPORT INFORMATION
  Report Type: 
  Country: None (occurrence: None)
  Receive Date: 20081020
  Receipt Date: 20081010
  Transmission Date: 20090506
  Serious: Yes (Hospitalization, Disabling)
  Sender: FDA-Public Use
  Company Number: 2008SP020423

PATIENT
  Age: 41 Year
  Sex: Male
  Weight: 77.5 kg

DRUGS (8)
  1. PEG-INTRON [Suspect]
     Indication: HEPATITIS C
     Dosage: 120 MCG; QW; SC
     Route: 058
     Dates: start: 20070928, end: 20080221
  2. COPEGUS [Suspect]
     Indication: HEPATITIS C
     Dosage: 1 GM; QD; PO
     Route: 048
     Dates: start: 20070928, end: 20080221
  3. METHADONE HCL [Concomitant]
  4. TRANKIMAZIN [Concomitant]
  5. CIPRALEX [Concomitant]
  6. VASTAT FIAS (VASTAT FIAS) [Concomitant]
  7. ASPIRIN [Concomitant]
  8. PONTALSIC [Concomitant]

REACTIONS (7)
  - ALOPECIA AREATA [None]
  - DEPRESSION [None]
  - ISCHAEMIC ULCER [None]
  - LYMPHADENOPATHY [None]
  - RAYNAUD'S PHENOMENON [None]
  - VISUAL ACUITY REDUCED [None]
  - VOMITING [None]
